FAERS Safety Report 19440878 (Version 4)
Quarter: 2021Q3

REPORT INFORMATION
  Report Type: Report from Study
  Country: GB (occurrence: GB)
  Receive Date: 20210621
  Receipt Date: 20210806
  Transmission Date: 20211014
  Serious: Yes (Hospitalization, Other)
  Sender: FDA-Public Use
  Company Number: GB-CELLTRION INC.-2018GB024625

PATIENT

DRUGS (86)
  1. CYCLOPHOSPHAMIDE. [Suspect]
     Active Substance: CYCLOPHOSPHAMIDE
     Dosage: 1260 MG/M2, EVERY 3 WEEKS (DOSE FORM: 293) (CUMULATIVE DOSE TO FIRST REACTION: 1742.5 MG/M2) (DATE O
     Route: 042
     Dates: start: 20181025
  2. CYCLOPHOSPHAMIDE. [Suspect]
     Active Substance: CYCLOPHOSPHAMIDE
     Dosage: 1260 MG/M2, EVERY 3 WEEKS (DOSE FORM: 293) (CUMULATIVE DOSE TO FIRST REACTION: 1742.5 MG/M2) (DATE O
     Route: 042
     Dates: start: 20181114
  3. CYCLOPHOSPHAMIDE. [Suspect]
     Active Substance: CYCLOPHOSPHAMIDE
     Dosage: 1260 MG/M2, EVERY 3 WEEKS (DOSE FORM: 293) (CUMULATIVE DOSE TO FIRST REACTION: 1742.5 MG/M2) (DATE O
     Route: 042
     Dates: start: 20181114
  4. CYCLOPHOSPHAMIDE. [Suspect]
     Active Substance: CYCLOPHOSPHAMIDE
     Dosage: 1260 MG/M2, EVERY 3 WEEKS (DOSE FORM: 293) (CUMULATIVE DOSE TO FIRST REACTION: 1742.5 MG/M2) (DATE O
     Route: 042
     Dates: start: 20180714
  5. DOXORUBICIN [Suspect]
     Active Substance: DOXORUBICIN
     Dosage: 90 MG/M2 EVERY 3 WEEK (CUMULATIVE DOSE TO FIRST REACTION: 124.46429 MG/M2) (DATE OF MOST RECENT DOSE
     Route: 042
     Dates: start: 20181114
  6. DOXORUBICIN [Suspect]
     Active Substance: DOXORUBICIN
     Dosage: 90 MG/M2 EVERY 3 WEEK (CUMULATIVE DOSE TO FIRST REACTION: 124.46429 MG/M2) (DATE OF MOST RECENT DOSE
     Route: 042
     Dates: start: 20181114
  7. PREDNISONE. [Suspect]
     Active Substance: PREDNISONE
     Indication: DIFFUSE LARGE B-CELL LYMPHOMA
     Dosage: PREDNISONE ON DAY 1 MAY BE ADMINISTERED IV, WITH THE REMAINING DOSES ON DAYS 2?5 TO BE ADMINISTERED
     Route: 042
  8. VINCRISTINE [Suspect]
     Active Substance: VINCRISTINE
     Dosage: 2 MG/M2, EVERY 3 WEEKS (DATE OF MOST RECENT DOSE PRIOR TO SAE ON 14/NOV/2018 AT 17:02, DOSE: 2 MG/M2
     Route: 042
     Dates: start: 20181025
  9. VINCRISTINE [Suspect]
     Active Substance: VINCRISTINE
     Dosage: 2 MG/M2, EVERY 3 WEEKS (DATE OF MOST RECENT DOSE PRIOR TO SAE ON 14/NOV/2018 AT 17:02, DOSE: 2 MG/M2
     Route: 042
     Dates: start: 20181114
  10. AMLODIPINE [Concomitant]
     Active Substance: AMLODIPINE BESYLATE
     Dosage: 10 MG
     Route: 065
  11. FILGRASTINE [Concomitant]
     Active Substance: FILGRASTIM
     Dosage: 300 UG
     Route: 065
     Dates: start: 20181123, end: 20181127
  12. GLICLAZIDE [Concomitant]
     Active Substance: GLICLAZIDE
     Dosage: 120 MG, QD
     Route: 065
     Dates: start: 2009
  13. CYCLOPHOSPHAMIDE. [Suspect]
     Active Substance: CYCLOPHOSPHAMIDE
     Dosage: 1260 MG/M2, EVERY 3 WEEKS (DOSE FORM: 293) (CUMULATIVE DOSE TO FIRST REACTION: 1742.5 MG/M2) (DATE O
     Route: 042
     Dates: start: 20181025
  14. CYCLOPHOSPHAMIDE. [Suspect]
     Active Substance: CYCLOPHOSPHAMIDE
     Dosage: 1260 MG/M2, EVERY 3 WEEKS (DOSE FORM: 293) (CUMULATIVE DOSE TO FIRST REACTION: 1742.5 MG/M2) (DATE O
     Route: 042
     Dates: start: 20181114
  15. VINCRISTINE [Suspect]
     Active Substance: VINCRISTINE
     Dosage: 2 MG/M2, EVERY 3 WEEKS (DATE OF MOST RECENT DOSE PRIOR TO SAE ON 14/NOV/2018 AT 17:02, DOSE: 2 MG/M2
     Route: 042
     Dates: start: 20181025
  16. COTRIMOXAZOLE [Concomitant]
     Active Substance: SULFAMETHOXAZOLE\TRIMETHOPRIM
     Dosage: 2880 MG, 1/WEEK
     Route: 065
     Dates: start: 20181025
  17. GRANULOCYTE COLONY STIMULATING FACTOR [Concomitant]
     Active Substance: GRANULOCYTE COLONY-STIMULATING FACTOR NOS
     Indication: NEUTROPENIA
     Dosage: UNK
     Dates: start: 20190404, end: 20190413
  18. RED BLOOD CELLS [Concomitant]
     Active Substance: HUMAN RED BLOOD CELL
     Indication: ANAEMIA
     Dosage: UNK
     Route: 065
     Dates: start: 20181125, end: 20181125
  19. CYCLOPHOSPHAMIDE. [Suspect]
     Active Substance: CYCLOPHOSPHAMIDE
     Dosage: 1260 MG/M2, EVERY 3 WEEKS (DOSE FORM: 293) (CUMULATIVE DOSE TO FIRST REACTION: 1742.5 MG/M2) (DATE O
     Route: 042
     Dates: start: 20181114
  20. VINCRISTINE [Suspect]
     Active Substance: VINCRISTINE
     Dosage: 2 MG/M2, EVERY 3 WEEKS (DATE OF MOST RECENT DOSE PRIOR TO SAE ON 14/NOV/2018 AT 17:02, DOSE: 2 MG/M2
     Route: 042
     Dates: start: 20181025
  21. ACICLOVIR [Concomitant]
     Active Substance: ACYCLOVIR
     Indication: PROPHYLAXIS
     Dosage: 200 MG, EVERY 0.33 DAYS
     Route: 065
     Dates: start: 20181025
  22. AMLODIPINE [Concomitant]
     Active Substance: AMLODIPINE BESYLATE
     Indication: HYPERTENSION
     Dosage: UNK
     Route: 065
     Dates: start: 2000, end: 20181108
  23. FILGRASTINE [Concomitant]
     Active Substance: FILGRASTIM
     Indication: NEUTROPENIA
     Dosage: 300 MICROGRAM
     Route: 065
     Dates: start: 20181030, end: 20181128
  24. FOLIC ACID. [Concomitant]
     Active Substance: FOLIC ACID
     Indication: BLOOD FOLATE DECREASED
     Dosage: UNK
     Route: 065
     Dates: start: 20190404
  25. LOSARTAN. [Concomitant]
     Active Substance: LOSARTAN
     Indication: HYPERTENSION
     Dosage: 50 MG
     Route: 065
     Dates: start: 2000, end: 20181101
  26. METFORMIN [Concomitant]
     Active Substance: METFORMIN HYDROCHLORIDE
     Dosage: 1500 MG DAILY (DOSE FORM: 245)
     Route: 065
     Dates: start: 1999
  27. CANESTEN [Concomitant]
     Active Substance: CLOTRIMAZOLE
     Indication: CANDIDA INFECTION
     Dosage: UNK
     Dates: start: 20181207, end: 20181220
  28. RITUXIMAB (UNKNOWN) [Suspect]
     Active Substance: RITUXIMAB
     Indication: DIFFUSE LARGE B-CELL LYMPHOMA
     Dosage: 660 MG/M2, EVERY 3 WEEKS (DOSAGE TEXT: DATE OF MOST RECENT DOSE PRIOR TO SAE ON 14/NOV/2018 AT 12:00
     Route: 042
     Dates: start: 20181114
  29. CYCLOPHOSPHAMIDE. [Suspect]
     Active Substance: CYCLOPHOSPHAMIDE
     Indication: DIFFUSE LARGE B-CELL LYMPHOMA
     Dosage: 1260 MG/M2, EVERY 3 WEEKS (DOSE FORM: 293) (CUMULATIVE DOSE TO FIRST REACTION: 1742.5 MG/M2) (DATE O
     Route: 042
     Dates: start: 20181025
  30. DOXORUBICIN [Suspect]
     Active Substance: DOXORUBICIN
     Dosage: 90 MG/M2 EVERY 3 WEEK (CUMULATIVE DOSE TO FIRST REACTION: 124.46429 MG/M2) (DATE OF MOST RECENT DOSE
     Route: 042
     Dates: start: 20181114
  31. VINCRISTINE [Suspect]
     Active Substance: VINCRISTINE
     Dosage: 2 MG/M2, EVERY 3 WEEKS (DATE OF MOST RECENT DOSE PRIOR TO SAE ON 14/NOV/2018 AT 17:02, DOSE: 2 MG/M2
     Route: 042
     Dates: start: 20181114
  32. OBINUTUZUMAB. [Concomitant]
     Active Substance: OBINUTUZUMAB
     Indication: DIFFUSE LARGE B-CELL LYMPHOMA
     Dosage: 1000 MG (DOSE FORM: 230) (DATE OF MOST RECENT DOSE PRIOR TO SAE ON 25/OCT/2018 AT 11:56)
     Route: 042
     Dates: start: 20181025
  33. OBINUTUZUMAB. [Concomitant]
     Active Substance: OBINUTUZUMAB
     Dosage: 1000 MG (DOSE FORM: 230) (DATE OF MOST RECENT DOSE PRIOR TO SAE ON 25/OCT/2018 AT 11:56)
     Route: 042
     Dates: start: 20181025
  34. CHLORPHENAMINE [Concomitant]
     Active Substance: CHLORPHENIRAMINE MALEATE
     Indication: PRODUCT USED FOR UNKNOWN INDICATION
     Dosage: UNK
     Route: 065
     Dates: start: 20181025
  35. DOMPERIDONE [Concomitant]
     Active Substance: DOMPERIDONE
     Dosage: 10?30 MG
     Route: 065
     Dates: start: 20181114, end: 20181119
  36. PARACETAMOL [Concomitant]
     Active Substance: ACETAMINOPHEN
     Indication: PAIN
     Dosage: UNK
     Route: 065
     Dates: start: 20181025
  37. PARACETAMOL [Concomitant]
     Active Substance: ACETAMINOPHEN
     Dosage: AS REQUIRED
     Route: 065
     Dates: start: 20181123
  38. SENNA [Concomitant]
     Active Substance: SENNA LEAF\SENNOSIDES\SENNOSIDES A AND B
     Indication: CONSTIPATION
     Dosage: UNK
     Route: 065
     Dates: start: 20181101
  39. RITUXIMAB (UNKNOWN) [Suspect]
     Active Substance: RITUXIMAB
     Dosage: 660 MG/M2, EVERY 3 WEEKS (DOSAGE TEXT: DATE OF MOST RECENT DOSE PRIOR TO SAE ON 14/NOV/2018 AT 12:00
     Route: 042
     Dates: start: 20181114
  40. RITUXIMAB (UNKNOWN) [Suspect]
     Active Substance: RITUXIMAB
     Dosage: 660 MG/M2, EVERY 3 WEEKS (DOSAGE TEXT: DATE OF MOST RECENT DOSE PRIOR TO SAE ON 14/NOV/2018 AT 12:00
     Route: 042
     Dates: start: 20181114
  41. CYCLOPHOSPHAMIDE. [Suspect]
     Active Substance: CYCLOPHOSPHAMIDE
     Dosage: 1260 MG/M2, EVERY 3 WEEKS (DOSE FORM: 293) (CUMULATIVE DOSE TO FIRST REACTION: 1742.5 MG/M2) (DATE O
     Route: 042
     Dates: start: 20181025
  42. CYCLOPHOSPHAMIDE. [Suspect]
     Active Substance: CYCLOPHOSPHAMIDE
     Dosage: UNK
  43. DOXORUBICIN [Suspect]
     Active Substance: DOXORUBICIN
     Dosage: 90 MG/M2 EVERY 3 WEEK (CUMULATIVE DOSE TO FIRST REACTION: 124.46429 MG/M2) (DATE OF MOST RECENT DOSE
     Route: 042
     Dates: start: 20181025
  44. DOXORUBICIN [Suspect]
     Active Substance: DOXORUBICIN
     Dosage: 90 MG/M2 EVERY 3 WEEK (CUMULATIVE DOSE TO FIRST REACTION: 124.46429 MG/M2) (DATE OF MOST RECENT DOSE
     Route: 042
     Dates: start: 20181114
  45. ALLOPURINOL. [Concomitant]
     Active Substance: ALLOPURINOL
     Indication: TUMOUR LYSIS SYNDROME
     Dosage: 300 MG, QD
     Route: 065
     Dates: start: 20181025, end: 201812
  46. COTRIMOXAZOLE [Concomitant]
     Active Substance: SULFAMETHOXAZOLE\TRIMETHOPRIM
     Indication: CANDIDA INFECTION
     Dosage: 960 MG, EVERY 0.33 WEEK
     Route: 065
     Dates: start: 20181025
  47. HUMULIN L [Concomitant]
     Active Substance: INSULIN HUMAN
     Indication: HYPERGLYCAEMIA
     Dosage: UNK
     Route: 065
     Dates: start: 20181029, end: 20181030
  48. INSULIN ISOPHANE BW [Concomitant]
     Indication: BLOOD MAGNESIUM DECREASED
     Dosage: UNK
     Route: 065
     Dates: start: 20181125, end: 20181128
  49. MAGNESIUM [Concomitant]
     Active Substance: MAGNESIUM
     Indication: BLOOD MAGNESIUM DECREASED
     Dosage: UNK
     Route: 065
     Dates: start: 20181123, end: 20181123
  50. ONDANSETRON [Concomitant]
     Active Substance: ONDANSETRON
     Indication: NAUSEA
     Dosage: UNK
     Route: 065
     Dates: start: 20181025
  51. CYCLOPHOSPHAMIDE. [Suspect]
     Active Substance: CYCLOPHOSPHAMIDE
     Dosage: 1260 MG/M2, EVERY 3 WEEKS (DOSE FORM: 293) (CUMULATIVE DOSE TO FIRST REACTION: 1742.5 MG/M2) (DATE O
     Route: 042
     Dates: start: 20181025
  52. DOXORUBICIN [Suspect]
     Active Substance: DOXORUBICIN
     Dosage: 90 MG/M2 EVERY 3 WEEK (CUMULATIVE DOSE TO FIRST REACTION: 124.46429 MG/M2) (DATE OF MOST RECENT DOSE
     Route: 042
     Dates: start: 20181025
  53. DOXORUBICIN [Suspect]
     Active Substance: DOXORUBICIN
     Dosage: 90 MG/M2 EVERY 3 WEEK (CUMULATIVE DOSE TO FIRST REACTION: 124.46429 MG/M2) (DATE OF MOST RECENT DOSE
     Route: 042
     Dates: start: 20181114
  54. VINCRISTINE [Suspect]
     Active Substance: VINCRISTINE
     Indication: DIFFUSE LARGE B-CELL LYMPHOMA
     Dosage: 2 MG/M2, EVERY 3 WEEKS (DATE OF MOST RECENT DOSE PRIOR TO SAE ON 14/NOV/2018 AT 17:02, DOSE: 2 MG/M2
     Route: 042
     Dates: start: 20181025
  55. ASPIRIN. [Concomitant]
     Active Substance: ASPIRIN
     Indication: PRODUCT USED FOR UNKNOWN INDICATION
     Dosage: 75 MG, QD
     Route: 065
  56. LEVOTHYROXINE. [Concomitant]
     Active Substance: LEVOTHYROXINE
     Dosage: UNK
     Route: 065
     Dates: start: 2000
  57. METFORMIN [Concomitant]
     Active Substance: METFORMIN HYDROCHLORIDE
     Dosage: 500 MG, EVERY 0.33 DAYS
     Route: 065
  58. ZANAMIVIR [Concomitant]
     Active Substance: ZANAMIVIR
     Dosage: UNK
     Route: 065
     Dates: start: 20181207, end: 20181220
  59. DOXORUBICIN [Suspect]
     Active Substance: DOXORUBICIN
     Dosage: 90 MG/M2 EVERY 3 WEEK (CUMULATIVE DOSE TO FIRST REACTION: 124.46429 MG/M2) (DATE OF MOST RECENT DOSE
     Route: 042
     Dates: start: 20181025
  60. VINCRISTINE [Suspect]
     Active Substance: VINCRISTINE
     Dosage: 2 MG/M2, EVERY 3 WEEKS (DATE OF MOST RECENT DOSE PRIOR TO SAE ON 14/NOV/2018 AT 17:02, DOSE: 2 MG/M2
     Route: 042
     Dates: start: 20181025
  61. CHOLECALCIFEROL [Concomitant]
     Active Substance: CHOLECALCIFEROL
     Indication: OSTEOPENIA
     Dosage: UNK
     Route: 065
     Dates: start: 20190617
  62. DOMPERIDONE [Concomitant]
     Active Substance: DOMPERIDONE
     Indication: PROPHYLAXIS OF NAUSEA AND VOMITING
     Dosage: UNK
     Route: 065
     Dates: start: 20181025
  63. GLICLAZIDE [Concomitant]
     Active Substance: GLICLAZIDE
     Indication: TYPE 2 DIABETES MELLITUS
     Dosage: 120 MG, QD
     Route: 065
  64. LOSARTAN. [Concomitant]
     Active Substance: LOSARTAN
     Dosage: 50 MG
  65. METFORMIN [Concomitant]
     Active Substance: METFORMIN HYDROCHLORIDE
     Dosage: 1500 MG (DOSE FORM: 245)
     Route: 065
  66. RANITIDINE. [Concomitant]
     Active Substance: RANITIDINE
     Indication: GASTROINTESTINAL DISORDER PROPHYLAXIS
     Dosage: 300 MG, 1 DAY
     Route: 065
  67. RANITIDINE. [Concomitant]
     Active Substance: RANITIDINE
     Dosage: 300 MG
     Route: 065
     Dates: start: 20181025
  68. RANITIDINE. [Concomitant]
     Active Substance: RANITIDINE
     Dosage: 150 MG, EVERY 0.5 DAY
  69. RENNIES [Concomitant]
     Indication: DYSPEPSIA
     Dosage: UNK
     Route: 065
     Dates: start: 201810, end: 201901
  70. RED BLOOD CELLS [Concomitant]
     Active Substance: HUMAN RED BLOOD CELL
     Dosage: UNK
     Route: 065
     Dates: start: 20190212, end: 20190212
  71. ACETYLSALICYLIC ACID [Concomitant]
     Active Substance: ASPIRIN
     Indication: PRODUCT USED FOR UNKNOWN INDICATION
     Dosage: 75 MG, QD
     Route: 065
  72. DOXORUBICIN [Suspect]
     Active Substance: DOXORUBICIN
     Indication: DIFFUSE LARGE B-CELL LYMPHOMA
     Dosage: 90 MG/M2 EVERY 3 WEEK (CUMULATIVE DOSE TO FIRST REACTION: 124.46429 MG/M2) (DATE OF MOST RECENT DOSE
     Route: 042
     Dates: start: 20181025
  73. DOXORUBICIN [Suspect]
     Active Substance: DOXORUBICIN
     Dosage: 90 MG/M2 EVERY 3 WEEK (CUMULATIVE DOSE TO FIRST REACTION: 124.46429 MG/M2) (DATE OF MOST RECENT DOSE
     Route: 042
     Dates: start: 20181025
  74. VINCRISTINE [Suspect]
     Active Substance: VINCRISTINE
     Dosage: 2 MG/M2, EVERY 3 WEEKS (DATE OF MOST RECENT DOSE PRIOR TO SAE ON 14/NOV/2018 AT 17:02, DOSE: 2 MG/M2
     Route: 042
     Dates: start: 20181114
  75. VINCRISTINE [Suspect]
     Active Substance: VINCRISTINE
     Dosage: 2 MG/M2, EVERY 3 WEEKS (DATE OF MOST RECENT DOSE PRIOR TO SAE ON 14/NOV/2018 AT 17:02, DOSE: 2 MG/M2
     Route: 042
     Dates: start: 20181114
  76. VINCRISTINE [Suspect]
     Active Substance: VINCRISTINE
     Dosage: 2 MG/M2, EVERY 3 WEEKS (DATE OF MOST RECENT DOSE PRIOR TO SAE ON 14/NOV/2018 AT 17:02, DOSE: 2 MG/M2
     Route: 042
     Dates: start: 20181114
  77. ACTONEL [Concomitant]
     Active Substance: RISEDRONATE SODIUM
     Indication: OSTEOPOROSIS PROPHYLAXIS
     Dosage: UNK
     Dates: start: 20190328
  78. ALLOPURINOL. [Concomitant]
     Active Substance: ALLOPURINOL
     Dosage: UNK
     Route: 065
     Dates: start: 20181121
  79. AMLODIPINE [Concomitant]
     Active Substance: AMLODIPINE BESYLATE
     Dosage: UNK
     Route: 065
     Dates: start: 20190618
  80. COTRIMOXAZOLE [Concomitant]
     Active Substance: SULFAMETHOXAZOLE\TRIMETHOPRIM
     Dosage: UNK
     Route: 065
     Dates: start: 20181207, end: 20181220
  81. LEVOTHYROXINE. [Concomitant]
     Active Substance: LEVOTHYROXINE
     Indication: HYPOTHYROIDISM
     Dosage: 100 MICROGRAM, QD
     Route: 065
     Dates: start: 2000
  82. METFORMIN [Concomitant]
     Active Substance: METFORMIN HYDROCHLORIDE
     Indication: TYPE 2 DIABETES MELLITUS
     Dosage: 1500 MG, QD (DOSE FORM: 245)
     Route: 065
  83. METFORMIN [Concomitant]
     Active Substance: METFORMIN HYDROCHLORIDE
     Dosage: UNK
     Route: 065
     Dates: start: 1999
  84. PARACETAMOL [Concomitant]
     Active Substance: ACETAMINOPHEN
     Dosage: AS REQUIRED
     Route: 065
     Dates: start: 20190125
  85. SIMVASTATIN. [Concomitant]
     Active Substance: SIMVASTATIN
     Indication: PRODUCT USED FOR UNKNOWN INDICATION
     Dosage: 20 MG, QD
     Route: 065
  86. PREDNISOLONE. [Concomitant]
     Active Substance: PREDNISOLONE
     Dosage: 80 MG
     Dates: start: 20181114, end: 20181118

REACTIONS (2)
  - Febrile neutropenia [Recovered/Resolved]
  - Overdose [Unknown]

NARRATIVE: CASE EVENT DATE: 20181123
